FAERS Safety Report 4525029-4 (Version None)
Quarter: 2004Q4

REPORT INFORMATION
  Report Type: 
  Country: None (occurrence: None)
  Receive Date: 20041210
  Receipt Date: 20041129
  Transmission Date: 20050328
  Serious: Yes (Hospitalization)
  Sender: FDA-Public Use
  Company Number: 2004099521

PATIENT
  Age: 19 Year
  Sex: Female
  Weight: 61.2356 kg

DRUGS (2)
  1. DRAMAMINE [Suspect]
     Indication: MOTION SICKNESS
     Dosage: 4-5 TABLETS QD PRN, ORAL
     Route: 048
     Dates: start: 20020101
  2. IRON (IRON) [Concomitant]

REACTIONS (2)
  - BLOOD URINE PRESENT [None]
  - KIDNEY INFECTION [None]
